FAERS Safety Report 11080697 (Version 1)
Quarter: 2015Q2

REPORT INFORMATION
  Report Type: Spontaneous
  Country: None (occurrence: None)
  Receive Date: 20150430
  Receipt Date: 20150430
  Transmission Date: 20150821
  Serious: No
  Sender: FDA-Public Use
  Company Number: None

PATIENT
  Age: 18 Year
  Sex: Female

DRUGS (1)
  1. COVER GIRL, SPF 15, LIP BALM [Suspect]
     Active Substance: COSMETICS

REACTIONS (1)
  - Product label issue [None]

NARRATIVE: CASE EVENT DATE: 20150421
